FAERS Safety Report 19633815 (Version 1)
Quarter: 2021Q3

REPORT INFORMATION
  Report Type: Spontaneous
  Country: US (occurrence: US)
  Receive Date: 20210729
  Receipt Date: 20210729
  Transmission Date: 20211014
  Serious: No
  Sender: FDA-Public Use
  Company Number: None

PATIENT
  Age: 67 Year
  Sex: Female
  Weight: 50.4 kg

DRUGS (9)
  1. CAPECITABINE. [Suspect]
     Active Substance: CAPECITABINE
     Indication: BREAST CANCER
     Dosage: ?          OTHER FREQUENCY:BID X 14/21 DAYS;?
     Route: 048
     Dates: start: 20210410
  2. ATORVASTATIN 80MG [Concomitant]
     Active Substance: ATORVASTATIN
  3. DALIRESP 500MCG [Concomitant]
  4. HYDROCHLOROTHIAZIDE 25MG [Concomitant]
     Active Substance: HYDROCHLOROTHIAZIDE
  5. VENTOLIN HFA [Concomitant]
     Active Substance: ALBUTEROL SULFATE
  6. ASPIRIN 81MG [Concomitant]
     Active Substance: ASPIRIN
  7. STIOLTO RESPIMAT 2.5?2.5 MCG/ACT [Concomitant]
  8. ONDANSETRON 8MG [Concomitant]
     Active Substance: ONDANSETRON
  9. ALBUTEROL 1.25MG/3ML [Concomitant]

REACTIONS (1)
  - Nail discolouration [None]

NARRATIVE: CASE EVENT DATE: 20210729
